FAERS Safety Report 16235852 (Version 1)
Quarter: 2019Q2

REPORT INFORMATION
  Report Type: Spontaneous
  Country: US (occurrence: US)
  Receive Date: 20190424
  Receipt Date: 20190424
  Transmission Date: 20190711
  Serious: No
  Sender: FDA-Public Use
  Company Number: US-SENTYNL THERAPEUTICS, INC.  -2066191

PATIENT
  Age: 37 Year
  Sex: Female
  Weight: 68.64 kg

DRUGS (1)
  1. LEVORPHANOL TARTRATE. [Suspect]
     Active Substance: LEVORPHANOL TARTRATE
     Route: 048
     Dates: start: 20190103, end: 20190104

REACTIONS (1)
  - Hypersensitivity [Recovered/Resolved]
